FAERS Safety Report 20032366 (Version 1)
Quarter: 2021Q4

REPORT INFORMATION
  Report Type: Spontaneous
  Country: US (occurrence: US)
  Receive Date: 20211103
  Receipt Date: 20211103
  Transmission Date: 20220303
  Serious: Yes (Life-Threatening, Hospitalization)
  Sender: FDA-Public Use
  Company Number: US-CELGENE-USA-20211100152

PATIENT
  Age: 62 Year
  Sex: Female
  Weight: 86.8 kg

DRUGS (19)
  1. ABRAXANE [Suspect]
     Active Substance: PACLITAXEL
     Indication: Pancreatic carcinoma metastatic
     Dosage: 125 MILLIGRAM/SQ. METER
     Route: 041
     Dates: start: 20190517, end: 20190628
  2. GEMCITABINE [Suspect]
     Active Substance: GEMCITABINE
     Indication: Pancreatic carcinoma metastatic
     Dosage: 1000 MILLIGRAM/SQ. METER
     Route: 041
     Dates: start: 20190517, end: 20190628
  3. DIGOXIN [Concomitant]
     Active Substance: DIGOXIN
     Indication: Atrial fibrillation
     Route: 065
     Dates: start: 2015
  4. DILTIAZEM [Concomitant]
     Active Substance: DILTIAZEM
     Indication: Atrial fibrillation
     Route: 065
     Dates: start: 2015
  5. WARFARIN [Concomitant]
     Active Substance: WARFARIN
     Indication: Atrial fibrillation
     Route: 065
     Dates: start: 2015
  6. ZOFRAN [Concomitant]
     Active Substance: ONDANSETRON HYDROCHLORIDE
     Indication: Prophylaxis
     Route: 065
     Dates: start: 201904
  7. ATIVAN [Concomitant]
     Active Substance: LORAZEPAM
     Indication: Nausea
     Route: 065
     Dates: start: 20190607
  8. TRAMADOL [Concomitant]
     Active Substance: TRAMADOL
     Indication: Pancreatic carcinoma metastatic
     Route: 065
     Dates: start: 201904
  9. PRILOSEC [Concomitant]
     Active Substance: OMEPRAZOLE MAGNESIUM
     Indication: Pancreatic carcinoma metastatic
     Route: 065
     Dates: start: 201904
  10. CHOLECALCIFEROL [Concomitant]
     Active Substance: CHOLECALCIFEROL
     Indication: Hysterectomy
     Route: 065
     Dates: start: 2015
  11. SENNA-S [Concomitant]
     Active Substance: DOCUSATE SODIUM\SENNOSIDES
     Indication: Prophylaxis
     Route: 065
     Dates: start: 20190428
  12. ALBUTEROL [Concomitant]
     Active Substance: ALBUTEROL
     Indication: Hypoxia
     Route: 065
     Dates: start: 20190707
  13. PROVENTIL [Concomitant]
     Active Substance: ALBUTEROL
     Indication: Hypoxia
     Route: 065
     Dates: start: 20190707
  14. METOPROLOL [Concomitant]
     Active Substance: METOPROLOL
     Indication: Hypertension
     Route: 065
     Dates: start: 20190722
  15. CANNABIDIOL\HERBALS [Concomitant]
     Active Substance: CANNABIDIOL\HERBALS
     Indication: Pancreatic carcinoma metastatic
     Route: 065
     Dates: start: 20190518
  16. ACETAMINOPHEN [Concomitant]
     Active Substance: ACETAMINOPHEN
     Indication: Pyrexia
     Route: 065
     Dates: start: 20190706
  17. DEXAMETHASONE SODIUM PHOSPHATE [Concomitant]
     Active Substance: DEXAMETHASONE SODIUM PHOSPHATE
     Indication: Prophylaxis
     Route: 065
     Dates: start: 20190517
  18. DIPHENHYDRAMINE [Concomitant]
     Active Substance: DIPHENHYDRAMINE
     Indication: Prophylaxis
     Route: 065
     Dates: start: 20190517
  19. FAMOTIDINE [Concomitant]
     Active Substance: FAMOTIDINE
     Indication: Prophylaxis
     Route: 065
     Dates: start: 20190517

REACTIONS (2)
  - Pneumonia [Recovering/Resolving]
  - Sepsis [Recovered/Resolved]

NARRATIVE: CASE EVENT DATE: 20190812
